FAERS Safety Report 15041576 (Version 1)
Quarter: 2018Q2

REPORT INFORMATION
  Report Type: Spontaneous
  Country: TW (occurrence: TW)
  Receive Date: 20180621
  Receipt Date: 20180621
  Transmission Date: 20180711
  Serious: Yes (Death)
  Sender: FDA-Public Use
  Company Number: TW-ORPHAN EUROPE-2049744

PATIENT
  Age: 1 Month
  Sex: Female
  Weight: 3.6 kg

DRUGS (2)
  1. CARBAGLU [Suspect]
     Active Substance: CARGLUMIC ACID
     Indication: HYPERAMMONAEMIA
     Route: 048
     Dates: start: 20180531
  2. CARBAGLU [Suspect]
     Active Substance: CARGLUMIC ACID
     Route: 048
     Dates: end: 20180601

REACTIONS (1)
  - Death [Fatal]

NARRATIVE: CASE EVENT DATE: 20180606
